FAERS Safety Report 13413429 (Version 1)
Quarter: 2017Q2

REPORT INFORMATION
  Report Type: Spontaneous
  Country: SE (occurrence: SE)
  Receive Date: 20170407
  Receipt Date: 20170407
  Transmission Date: 20170830
  Serious: Yes (Other)
  Sender: FDA-Public Use
  Company Number: PHHY2017SE050513

PATIENT
  Age: 70 Year
  Sex: Female

DRUGS (1)
  1. ACLASTA [Suspect]
     Active Substance: ZOLEDRONIC ACID
     Indication: OSTEOPOROSIS
     Dosage: UNK
     Route: 065
     Dates: start: 20131105

REACTIONS (6)
  - Abdominal pain upper [Unknown]
  - Eye pain [Unknown]
  - Periodontitis [Unknown]
  - Pain [Unknown]
  - Urticaria [Unknown]
  - Limb discomfort [Unknown]

NARRATIVE: CASE EVENT DATE: 20131105
